FAERS Safety Report 18701078 (Version 1)
Quarter: 2021Q1

REPORT INFORMATION
  Report Type: Spontaneous
  Country: US (occurrence: US)
  Receive Date: 20210104
  Receipt Date: 20210104
  Transmission Date: 20210419
  Serious: No
  Sender: FDA-Public Use
  Company Number: None

PATIENT
  Age: 37 Year
  Sex: Female
  Weight: 60.75 kg

DRUGS (10)
  1. PROBIOTICS [Concomitant]
     Active Substance: PROBIOTICS NOS
  2. NAPROXEN. [Concomitant]
     Active Substance: NAPROXEN
  3. RESTASIS [Suspect]
     Active Substance: CYCLOSPORINE
     Indication: DRY EYE
     Dosage: ?          QUANTITY:1 DROP(S);?
     Route: 047
     Dates: start: 20201228, end: 20210104
  4. B6 [Concomitant]
     Active Substance: PYRIDOXINE HYDROCHLORIDE
  5. B?VITAMINS [Concomitant]
  6. REACTINE [Concomitant]
  7. XIFAXAN [Concomitant]
     Active Substance: RIFAXIMIN
  8. IRON WOTHOUT B?VITAMINS [Concomitant]
  9. VITAMIN D [Concomitant]
     Active Substance: VITAMIN D NOS
  10. VITAMIN C [Concomitant]
     Active Substance: ASCORBIC ACID

REACTIONS (4)
  - Eye irritation [None]
  - Tremor [None]
  - Therapy interrupted [None]
  - Eye pain [None]

NARRATIVE: CASE EVENT DATE: 20201228
